FAERS Safety Report 4622033-2 (Version None)
Quarter: 2005Q1

REPORT INFORMATION
  Report Type: 
  Country: None (occurrence: None)
  Receive Date: 20050328
  Receipt Date: 20050314
  Transmission Date: 20050727
  Serious: Yes (Hospitalization, Other)
  Sender: FDA-Public Use
  Company Number: 03-000070

PATIENT
  Age: 55 Year
  Sex: Female
  Weight: 72.6 kg

DRUGS (5)
  1. FEMRING [Suspect]
     Indication: VULVOVAGINAL DRYNESS
     Dosage: 0.05 MG, QD, VAGINAL
     Route: 067
     Dates: start: 20030617, end: 20030710
  2. CENTRUM SILVER (ASCORBIC ACID, CALCIUM, MINERALS NOS, RETINOL, TOCOPHE [Concomitant]
  3. OSCAL 500-D (COLECALCIFEROL, CALCIUM) [Concomitant]
  4. MSM WITH GLUCOSAMINE [Concomitant]
  5. VIOXX [Concomitant]

REACTIONS (2)
  - BLOOD PRESSURE INCREASED [None]
  - GLOBAL AMNESIA [None]
